FAERS Safety Report 12643227 (Version 3)
Quarter: 2016Q4

REPORT INFORMATION
  Report Type: Report from Study
  Country: GB (occurrence: GB)
  Receive Date: 20160811
  Receipt Date: 20161206
  Transmission Date: 20170207
  Serious: Yes (Hospitalization, Other)
  Sender: FDA-Public Use
  Company Number: GB-TEVA-683899ACC

PATIENT
  Sex: Female

DRUGS (17)
  1. ALLOPURINOL. [Concomitant]
     Active Substance: ALLOPURINOL
     Indication: TUMOUR LYSIS SYNDROME
     Route: 065
     Dates: start: 20160614, end: 20160628
  2. PARACETAMOL [Concomitant]
     Active Substance: ACETAMINOPHEN
     Indication: PYREXIA
     Route: 065
     Dates: start: 20160614, end: 20160614
  3. FILGRASTIM [Concomitant]
     Active Substance: FILGRASTIM
     Indication: PRODUCT USED FOR UNKNOWN INDICATION
     Route: 065
     Dates: start: 20160617, end: 20160622
  4. DEXAMETHASONE. [Concomitant]
     Active Substance: DEXAMETHASONE
     Indication: PRODUCT USED FOR UNKNOWN INDICATION
     Route: 065
  5. FLUCONAZOLE. [Concomitant]
     Active Substance: FLUCONAZOLE
     Indication: PRODUCT USED FOR UNKNOWN INDICATION
     Route: 065
     Dates: start: 20160614
  6. BENDAMUSTINE HYDROCHLORIDE. [Suspect]
     Active Substance: BENDAMUSTINE HYDROCHLORIDE
     Indication: DIFFUSE LARGE B-CELL LYMPHOMA
     Route: 042
     Dates: start: 20160615
  7. RITUXIMAB [Suspect]
     Active Substance: RITUXIMAB
     Indication: DIFFUSE LARGE B-CELL LYMPHOMA
     Route: 042
     Dates: start: 20160614
  8. ROPINIROLE. [Concomitant]
     Active Substance: ROPINIROLE
     Indication: RESTLESS LEGS SYNDROME
     Route: 065
  9. METOCLOPRAMIDE. [Concomitant]
     Active Substance: METOCLOPRAMIDE
     Indication: NAUSEA
     Route: 065
     Dates: start: 20160620, end: 20160824
  10. SEPTRIN [Concomitant]
     Active Substance: SULFAMETHOXAZOLE\TRIMETHOPRIM
     Indication: INFECTION PROPHYLAXIS
     Route: 065
     Dates: start: 20160615
  11. DALTEPARIN [Concomitant]
     Active Substance: DALTEPARIN
     Indication: THROMBOSIS PROPHYLAXIS
     Dosage: 500 UNITS
     Route: 065
     Dates: start: 20160524, end: 20160824
  12. FILGRASTIM [Concomitant]
     Active Substance: FILGRASTIM
     Route: 065
     Dates: start: 20160713, end: 20160719
  13. CITALOPRAM [Concomitant]
     Active Substance: CITALOPRAM HYDROBROMIDE
     Indication: DEPRESSION
     Route: 065
  14. ACICLOVIR [Concomitant]
     Active Substance: ACYCLOVIR
     Indication: ANTIVIRAL PROPHYLAXIS
     Route: 065
     Dates: start: 20160615
  15. ZAPAIN [Concomitant]
     Active Substance: ACETAMINOPHEN\CODEINE PHOSPHATE
     Indication: PAIN
     Route: 065
  16. LANSOPRAZOLE. [Concomitant]
     Active Substance: LANSOPRAZOLE
     Indication: PRODUCT USED FOR UNKNOWN INDICATION
     Route: 065
  17. ONDANSETRON [Concomitant]
     Active Substance: ONDANSETRON
     Indication: NAUSEA
     Route: 065
     Dates: start: 20160615, end: 20160617

REACTIONS (4)
  - Lower respiratory tract infection [Recovered/Resolved]
  - Acute kidney injury [Recovered/Resolved]
  - Off label use [Unknown]
  - Lower respiratory tract infection [Recovered/Resolved]

NARRATIVE: CASE EVENT DATE: 20160701
